FAERS Safety Report 8193178-8 (Version None)
Quarter: 2012Q1

REPORT INFORMATION
  Report Type: 
  Country: None (occurrence: None)
  Receive Date: 20120308
  Receipt Date: 20120229
  Transmission Date: 20120608
  Serious: Yes (Hospitalization, Other)
  Sender: FDA-Public Use
  Company Number: JP-SANOFI-AVENTIS-2012SA011013

PATIENT
  Age: 67 Year
  Sex: Male

DRUGS (4)
  1. INSULIN [Concomitant]
  2. GEMZAR [Suspect]
     Route: 042
  3. LANSOPRAZOLE [Concomitant]
  4. ZOLPIDEM [Suspect]
     Indication: INSOMNIA
     Route: 048
     Dates: start: 20120128

REACTIONS (1)
  - WHITE BLOOD CELL COUNT DECREASED [None]
